FAERS Safety Report 5033836-7 (Version None)
Quarter: 2006Q2

REPORT INFORMATION
  Report Type: 
  Country: None (occurrence: None)
  Receive Date: 20060518
  Receipt Date: 20060111
  Transmission Date: 20061013
  Serious: Yes (Other)
  Sender: FDA-Public Use
  Company Number: 2005033059

PATIENT
  Age: 41 Year
  Sex: Female
  Weight: 86.1834 kg

DRUGS (3)
  1. DEPO-PROVERA [Suspect]
     Indication: CONTRACEPTION
     Dosage: SEE IMAGE
     Dates: start: 20020801, end: 20020801
  2. DEPO-PROVERA [Suspect]
     Indication: CONTRACEPTION
     Dosage: SEE IMAGE
     Dates: start: 20040601, end: 20040601
  3. PAXIL (PARXOETINE HYDROCHLORIDE) [Concomitant]

REACTIONS (1)
  - AMENORRHOEA [None]
